FAERS Safety Report 8377704-1 (Version None)
Quarter: 2012Q2

REPORT INFORMATION
  Report Type: 
  Country: None (occurrence: None)
  Receive Date: 20120522
  Receipt Date: 20120516
  Transmission Date: 20120825
  Serious: Yes (Other)
  Sender: FDA-Public Use
  Company Number: US-GLAXOSMITHKLINE-A0977873A

PATIENT
  Age: 80 Year
  Sex: Male

DRUGS (9)
  1. COREG CR [Concomitant]
  2. PRAVASTATIN [Concomitant]
  3. AVODART [Suspect]
     Indication: BENIGN PROSTATIC HYPERPLASIA
     Dosage: .5MG PER DAY
     Route: 048
  4. FUROSEMIDE [Concomitant]
  5. DEXILANT [Concomitant]
  6. FOLIC ACID [Concomitant]
  7. IRON [Concomitant]
  8. ASPIRIN [Concomitant]
  9. WARFARIN SODIUM [Concomitant]

REACTIONS (3)
  - BREAST PAIN [None]
  - TONGUE NEOPLASM MALIGNANT STAGE UNSPECIFIED [None]
  - DYSPHAGIA [None]
